FAERS Safety Report 10195348 (Version 1)
Quarter: 2014Q2

REPORT INFORMATION
  Report Type: Spontaneous
  Country: CH (occurrence: CH)
  Receive Date: 20140526
  Receipt Date: 20140526
  Transmission Date: 20141212
  Serious: Yes (Death)
  Sender: FDA-Public Use
  Company Number: CH-PFIZER INC-2014141488

PATIENT
  Age: 79 Year
  Sex: Female

DRUGS (11)
  1. ALDACTONE [Suspect]
     Indication: CORONARY ARTERY DISEASE
     Dosage: 25 MG FILM COATED TABLET 1 DOSAGE FORM PER DAY
     Dates: end: 20140205
  2. ATORVASTATIN CALCIUM [Suspect]
     Indication: DYSLIPIDAEMIA
     Dosage: 40 MG, 1X/DAY
     Route: 048
     Dates: end: 20140205
  3. PANTOZOL [Suspect]
     Dosage: 40 MG, 1X/DAY
  4. CO-AMOXI [Suspect]
     Indication: PNEUMONIA BACTERIAL
     Dosage: 1 DF, UNK
     Dates: start: 20131228, end: 20140106
  5. BRILIQUE [Suspect]
     Indication: ACUTE MYOCARDIAL INFARCTION
     Dosage: 90 MG, 2X/DAY
     Route: 048
     Dates: start: 201312, end: 20140210
  6. TOREM [Concomitant]
     Dosage: 5 MG, 1X/DAY
     Route: 048
     Dates: end: 20140205
  7. ASPIRIN CARDIO [Concomitant]
     Dosage: 100 MG, 1X/DAY
  8. DIOVAN ^CIBA-GEIGY^ [Concomitant]
     Dosage: 160 MG, 2X/DAY
     Route: 048
     Dates: end: 20140205
  9. DILATREND [Concomitant]
     Dosage: 9.375 MG, 1X/DAY
     Route: 048
  10. ELTROXIN [Concomitant]
     Dosage: 0.05 MG, 1X/DAY
  11. CALCIMAGON-D3 [Concomitant]
     Dosage: UNK
     Dates: end: 20140205

REACTIONS (6)
  - Cholestasis [Fatal]
  - Jaundice cholestatic [Fatal]
  - Blood bilirubin increased [Fatal]
  - Transaminases increased [Fatal]
  - Blood alkaline phosphatase increased [Fatal]
  - Hepatic steatosis [Fatal]
